FAERS Safety Report 6507259-5 (Version None)
Quarter: 2009Q4

REPORT INFORMATION
  Report Type: 
  Country: None (occurrence: None)
  Receive Date: 20091221
  Receipt Date: 20091215
  Transmission Date: 20100525
  Serious: Yes (Death, Hospitalization)
  Sender: FDA-Public Use
  Company Number: PHHY2009CA53341

PATIENT
  Sex: Male

DRUGS (1)
  1. CLOZARIL [Suspect]
     Dosage: UNK
     Dates: start: 20090703

REACTIONS (4)
  - COLECTOMY [None]
  - JEJUNOSTOMY [None]
  - LARGE INTESTINE PERFORATION [None]
  - SEPSIS [None]
